FAERS Safety Report 8259414-4 (Version None)
Quarter: 2012Q2

REPORT INFORMATION
  Report Type: 
  Country: None (occurrence: None)
  Receive Date: 20120404
  Receipt Date: 20120327
  Transmission Date: 20120825
  Serious: Yes (Other)
  Sender: FDA-Public Use
  Company Number: US-ASTRAZENECA-2012SE20519

PATIENT
  Sex: Female

DRUGS (2)
  1. TENORMIN [Suspect]
     Indication: HYPERTENSION
     Route: 048
  2. ZESTRIL [Interacting]
     Route: 048

REACTIONS (4)
  - TREMOR [None]
  - FEMUR FRACTURE [None]
  - NERVOUSNESS [None]
  - DRUG INTERACTION [None]
